FAERS Safety Report 12437948 (Version 1)
Quarter: 2016Q2

REPORT INFORMATION
  Report Type: Spontaneous
  Country: US (occurrence: US)
  Receive Date: 20160606
  Receipt Date: 20160606
  Transmission Date: 20160815
  Serious: No
  Sender: FDA-Public Use
  Company Number: US-BAYER-2016-103914

PATIENT
  Age: 79 Year
  Sex: Male
  Weight: 73.47 kg

DRUGS (7)
  1. PRAVASTATIN [Concomitant]
     Active Substance: PRAVASTATIN\PRAVASTATIN SODIUM
  2. BAYER LOW DOSE [Suspect]
     Active Substance: ASPIRIN
     Indication: ANTICOAGULANT THERAPY
     Dosage: 1 DF, QD
     Route: 048
  3. CLARITIN [Suspect]
     Active Substance: LORATADINE
     Indication: SEASONAL ALLERGY
     Dosage: 1 DF, QD
     Route: 048
  4. BAYER LOW DOSE [Suspect]
     Active Substance: ASPIRIN
     Indication: ANTICOAGULANT THERAPY
     Dosage: 1 DF, QOD
     Route: 048
  5. OMEGA 3 [Concomitant]
     Active Substance: OMEGA-3 FATTY ACIDS
  6. PLAVIX [Concomitant]
     Active Substance: CLOPIDOGREL BISULFATE
  7. COREG [Concomitant]
     Active Substance: CARVEDILOL

REACTIONS (2)
  - Product use issue [None]
  - Drug ineffective [None]
